FAERS Safety Report 6746105-1 (Version None)
Quarter: 2010Q2

REPORT INFORMATION
  Report Type: 
  Country: None (occurrence: None)
  Receive Date: 20100528
  Receipt Date: 20100518
  Transmission Date: 20101027
  Serious: Yes (Other)
  Sender: FDA-Public Use
  Company Number: US-SANOFI-AVENTIS-A03200702919

PATIENT
  Age: 46 Year
  Sex: Female

DRUGS (1)
  1. AMBIEN CR [Suspect]
     Indication: INSOMNIA
     Dosage: UNIT DOSE: 12.5 MG
     Route: 048
     Dates: start: 20070214, end: 20070214

REACTIONS (6)
  - AMNESIA [None]
  - BACK PAIN [None]
  - CONTUSION [None]
  - EXPIRED DRUG ADMINISTERED [None]
  - IMPAIRED DRIVING ABILITY [None]
  - ROAD TRAFFIC ACCIDENT [None]
